FAERS Safety Report 7741223-3 (Version None)
Quarter: 2011Q3

REPORT INFORMATION
  Report Type: 
  Country: None (occurrence: None)
  Receive Date: 20110909
  Receipt Date: 20110902
  Transmission Date: 20111222
  Serious: Yes (Hospitalization, Other)
  Sender: FDA-Public Use
  Company Number: US-B.I. PHARMACEUTICALS,INC./RIDGEFIELD-2011-BP-21386BP

PATIENT
  Sex: Female

DRUGS (5)
  1. METOPROLOL TARTRATE [Concomitant]
     Indication: ATRIAL FIBRILLATION
     Dosage: 100 MG
     Route: 048
  2. CRESTOR [Concomitant]
     Indication: PROPHYLAXIS
     Dosage: 5 MG
     Route: 048
  3. PRADAXA [Suspect]
     Indication: ATRIAL FIBRILLATION
     Dosage: 300 MG
     Route: 048
     Dates: start: 20110625, end: 20110824
  4. NORVASC [Concomitant]
     Indication: PROPHYLAXIS
     Dosage: 10 MG
     Route: 048
  5. BENAZEPRIL HYDROCHLORIDE [Concomitant]
     Indication: PROPHYLAXIS
     Dosage: 40 MG
     Route: 048

REACTIONS (2)
  - APHASIA [None]
  - TRANSIENT ISCHAEMIC ATTACK [None]
